FAERS Safety Report 5859654-5 (Version None)
Quarter: 2008Q3

REPORT INFORMATION
  Report Type: 
  Country: None (occurrence: None)
  Receive Date: 20080827
  Receipt Date: 20080821
  Transmission Date: 20090109
  Serious: Yes (Life-Threatening)
  Sender: FDA-Public Use
  Company Number: CA-JNJFOC-20080706069

PATIENT
  Sex: Female
  Weight: 52.5 kg

DRUGS (1)
  1. REMINYL ER [Suspect]
     Indication: DEMENTIA
     Route: 048

REACTIONS (6)
  - DYSGEUSIA [None]
  - FALL [None]
  - HIP FRACTURE [None]
  - HYPOPHAGIA [None]
  - NAUSEA [None]
  - VOMITING [None]
